FAERS Safety Report 9431729 (Version 11)
Quarter: 2014Q2

REPORT INFORMATION
  Report Type: Report from Study
  Country: CA (occurrence: CA)
  Receive Date: 20130731
  Receipt Date: 20140529
  Transmission Date: 20141212
  Serious: Yes (Other)
  Sender: FDA-Public Use
  Company Number: CA-ROCHE-1212563

PATIENT
  Age: 83 Year
  Sex: Male

DRUGS (6)
  1. VEMURAFENIB [Suspect]
     Indication: MALIGNANT MELANOMA
     Route: 048
     Dates: start: 20130108, end: 20130113
  2. VEMURAFENIB [Suspect]
     Route: 048
     Dates: start: 20130121, end: 20130619
  3. VEMURAFENIB [Suspect]
     Route: 048
     Dates: start: 20130131, end: 20130503
  4. VEMURAFENIB [Suspect]
     Route: 048
     Dates: start: 20130217
  5. VEMURAFENIB [Suspect]
     Route: 048
     Dates: start: 20130620
  6. VEMURAFENIB [Suspect]
     Dosage: ONGOING
     Route: 048
     Dates: start: 20130108

REACTIONS (4)
  - Carcinoma in situ [Recovered/Resolved]
  - Squamous cell carcinoma [Recovered/Resolved with Sequelae]
  - Basal cell carcinoma [Recovered/Resolved]
  - Squamous cell carcinoma of skin [Recovered/Resolved]
